FAERS Safety Report 4428002-X (Version None)
Quarter: 2004Q3

REPORT INFORMATION
  Report Type: 
  Country: None (occurrence: None)
  Receive Date: 20040813
  Receipt Date: 20040809
  Transmission Date: 20050211
  Serious: Yes (Other)
  Sender: FDA-Public Use
  Company Number: 2004227326US

PATIENT
  Sex: Female

DRUGS (5)
  1. PROVERA [Suspect]
  2. PREMARIN [Suspect]
  3. PREMPRO [Suspect]
  4. CYCRIN [Suspect]
  5. ESTROGENS () [Concomitant]

REACTIONS (3)
  - BREAST CANCER FEMALE [None]
  - LYMPHOEDEMA [None]
  - POST PROCEDURAL COMPLICATION [None]
